FAERS Safety Report 19247760 (Version 1)
Quarter: 2021Q2

REPORT INFORMATION
  Report Type: Spontaneous
  Country: DE (occurrence: DE)
  Receive Date: 20210512
  Receipt Date: 20210512
  Transmission Date: 20210717
  Serious: Yes (Hospitalization)
  Sender: FDA-Public Use
  Company Number: NVSC2021DE097302

PATIENT
  Age: 82 Year
  Sex: Female

DRUGS (4)
  1. FUROSEMIDE. [Suspect]
     Active Substance: FUROSEMIDE
     Dosage: 5 MG
     Route: 065
  2. FUROSEMIDE. [Suspect]
     Active Substance: FUROSEMIDE
     Indication: PRODUCT USED FOR UNKNOWN INDICATION
     Dosage: 10 MG
     Route: 065
  3. DIGIMERCK MINOR [Suspect]
     Active Substance: DIGITOXIN
     Indication: ATRIAL FIBRILLATION
     Dosage: 0.05 MG
     Route: 065
     Dates: start: 20201217, end: 202102
  4. DIGIMERCK MINOR [Suspect]
     Active Substance: DIGITOXIN
     Dosage: 0.07 MG, Q2MO (DOSE INCREASED)
     Route: 065
     Dates: start: 202102

REACTIONS (13)
  - Incorrect dose administered [Unknown]
  - Electrolyte depletion [Not Recovered/Not Resolved]
  - Dyspnoea [Unknown]
  - Disturbance in attention [Unknown]
  - Myalgia [Unknown]
  - Atrial fibrillation [Unknown]
  - Peripheral coldness [Recovered/Resolved]
  - Muscle spasms [Not Recovered/Not Resolved]
  - Pallor [Unknown]
  - Feeling cold [Unknown]
  - Product availability issue [Unknown]
  - Weight decreased [Unknown]
  - Hyperhidrosis [Unknown]

NARRATIVE: CASE EVENT DATE: 202012
